FAERS Safety Report 7985941-0 (Version None)
Quarter: 2011Q4

REPORT INFORMATION
  Report Type: 
  Country: None (occurrence: None)
  Receive Date: 20111007
  Receipt Date: 20110908
  Transmission Date: 20120403
  Serious: No
  Sender: FDA-Public Use
  Company Number: 2011HGS-002504

PATIENT
  Age: 44 Year
  Sex: Female
  Weight: 117.9352 kg

DRUGS (26)
  1. VICODIN (VICODIN) (PARACETAMOL, HYDROCODONE BITARTRATE) [Concomitant]
  2. FENTANYL [Concomitant]
  3. PROZAC [Concomitant]
  4. ALLEGRA (FEXOFENADINE HYDROCHLORIDE) (FEXOFENADINE HYDROCHLORIDE) [Concomitant]
  5. ESTER-C (CALCIUM ASCORBATE) (CALCIUM ASCORBATE) [Concomitant]
  6. K-DUR (POTASSIUM CHLORIDE) (POTASSIUM CHLORIDE) [Concomitant]
  7. CALCIUM (CALCIUM-SANDOZ FORTE) (CALCIUM CARBONATE, CALCIUM LACTOGLUCON [Concomitant]
  8. GLUCOPHAGE (METFORMIN) (METFORMIN) [Concomitant]
  9. PLAQUENIL (HYDROXYCHLOROQUINE SULFATE) (HYDROXYCHLOROQUINE SULFATE) [Concomitant]
  10. KEPPRA [Concomitant]
  11. REQUIP (ROPINIROLE HYDROCHLORIDE) (ROPINIROLE HYDROCHLORIDE) [Concomitant]
  12. MAGNESIUM (MAGNESIUM) (MAGNESIUM) [Concomitant]
  13. HYDROXYZINE [Concomitant]
  14. FOLIC ACID [Concomitant]
  15. BENLYSTA [Suspect]
     Indication: SYSTEMIC LUPUS ERYTHEMATOSUS
     Dosage: INTRAVENOUS DRIP
     Route: 041
     Dates: start: 20110615, end: 20110713
  16. PREDNISONE (PREDNISONE) (PREDNSONE) [Concomitant]
  17. LASIX (LASIX /SCH/) (FUROSEMIDE, FUROSEMIDE SODIUM) [Concomitant]
  18. NEXIUM (ESOMEPRAZOLE SODIUM) (ESOMEPRAZOLE SODIUM) [Concomitant]
  19. RESTASIS (CICLOSPORIN) (CICLOSPORIN) [Concomitant]
  20. CARDIZEM CD (DILTIAZEM HYDROCHLORIDE) (DILTIAZEM HYDROCHLORIDE) [Concomitant]
  21. MAXALT (RIZATRIPTAN BENZOATE) (RIZATRIPTAN BENZOATE) [Concomitant]
  22. VITAMIN D (ERGOCALCIFEROL) (ERGOCALCIFEROL) [Concomitant]
  23. AMBIEN [Concomitant]
  24. COMPAZINE (PROCHLORPERAZINE EDISYLATE) (PROCHLORPERAZINE EDISYLATE) [Concomitant]
  25. CELLCEPT (MYCOPHENOLATE MOFETIL) (MYCOPHENOLATE MOFETIL) [Concomitant]
  26. ZOCOR [Concomitant]

REACTIONS (18)
  - FALL [None]
  - URTICARIA [None]
  - DEPRESSION [None]
  - JOINT STIFFNESS [None]
  - ALOPECIA [None]
  - NAUSEA [None]
  - SWELLING [None]
  - DYSPNOEA [None]
  - PRURITUS [None]
  - VISUAL IMPAIRMENT [None]
  - DIABETES MELLITUS [None]
  - SYSTEMIC LUPUS ERYTHEMATOSUS [None]
  - STOMATITIS [None]
  - INSOMNIA [None]
  - SWOLLEN TONGUE [None]
  - TACHYPHRENIA [None]
  - GAIT DISTURBANCE [None]
  - FLUID RETENTION [None]
